FAERS Safety Report 9240297 (Version 1)
Quarter: 2013Q2

REPORT INFORMATION
  Report Type: Spontaneous
  Country: US (occurrence: None)
  Receive Date: 20130418
  Receipt Date: 20130418
  Transmission Date: 20140414
  Serious: Yes (Other)
  Sender: FDA-Public Use
  Company Number: None

PATIENT
  Sex: Female
  Weight: 69.85 kg

DRUGS (1)
  1. MIRENA [Suspect]
     Dates: start: 20120307, end: 20130601

REACTIONS (6)
  - Vaginal inflammation [None]
  - Vulvovaginal dryness [None]
  - Vulvovaginal pruritus [None]
  - Vulvovaginal discomfort [None]
  - Anorectal disorder [None]
  - Vaginal disorder [None]
